FAERS Safety Report 8735088 (Version 2)
Quarter: 2013Q4

REPORT INFORMATION
  Report Type: Spontaneous
  Country: US (occurrence: US)
  Receive Date: 20120821
  Receipt Date: 20131101
  Transmission Date: 20140711
  Serious: No
  Sender: FDA-Public Use
  Company Number: US-009507513-1208USA006198

PATIENT
  Age: 62 Year
  Sex: Male

DRUGS (1)
  1. A+D MEDICATED OINTMENT [Suspect]
     Indication: SKIN IRRITATION
     Dosage: UNK, UNKNOWN
     Route: 061

REACTIONS (1)
  - Skin ulcer [Not Recovered/Not Resolved]
